FAERS Safety Report 25183243 (Version 1)
Quarter: 2025Q2

REPORT INFORMATION
  Report Type: Spontaneous
  Country: US (occurrence: None)
  Receive Date: 20250409
  Receipt Date: 20250409
  Transmission Date: 20250716
  Serious: No
  Sender: FDA-CTU
  Company Number: None

PATIENT
  Age: 34 Year
  Sex: Female
  Weight: 98 kg

DRUGS (1)
  1. BENLYSTA [Suspect]
     Active Substance: BELIMUMAB
     Dosage: FREQUENCY : WEEKLY;?
     Route: 058
     Dates: start: 20231201

REACTIONS (4)
  - Depression [None]
  - Depressed mood [None]
  - Emotional disorder [None]
  - Decreased interest [None]

NARRATIVE: CASE EVENT DATE: 20240501
